FAERS Safety Report 9548157 (Version 5)
Quarter: 2014Q1

REPORT INFORMATION
  Report Type: Report from Study
  Country: ES (occurrence: ES)
  Receive Date: 20130924
  Receipt Date: 20140205
  Transmission Date: 20141002
  Serious: Yes (Other)
  Sender: FDA-Public Use
  Company Number: ES-VERTEX PHARMACEUTICALS INC-2013-008667

PATIENT
  Sex: 0

DRUGS (4)
  1. TELAPREVIR [Suspect]
     Indication: HEPATITIS C
     Route: 048
  2. RIBAVIRIN [Suspect]
     Indication: CHRONIC HEPATITIS C
     Dosage: DOSAGE FORM: UNSPECIFIED
     Route: 065
  3. PEG-INTERFERON [Suspect]
     Indication: CHRONIC HEPATITIS C
     Route: 065
  4. PEG-INTERFERON [Suspect]
     Dosage: DOSAGE FORM: UNSPECIFIED

REACTIONS (15)
  - Adverse drug reaction [Unknown]
  - Liver disorder [Unknown]
  - Neutropenia [Unknown]
  - Renal impairment [Unknown]
  - Thrombocytopenia [Unknown]
  - Anaemia [Unknown]
  - Hyperuricaemia [Unknown]
  - Condition aggravated [Unknown]
  - Creatinine renal clearance decreased [Unknown]
  - Anorectal disorder [Unknown]
  - Diarrhoea [Unknown]
  - Drug ineffective [Unknown]
  - Nausea [Unknown]
  - Pruritus [Unknown]
  - Rash [Unknown]
